FAERS Safety Report 7179342-5 (Version None)
Quarter: 2010Q4

REPORT INFORMATION
  Report Type: 
  Country: None (occurrence: None)
  Receive Date: 20101217
  Receipt Date: 20101217
  Transmission Date: 20110411
  Serious: Yes (Other)
  Sender: FDA-Public Use
  Company Number: None

PATIENT
  Sex: Female
  Weight: 89.8122 kg

DRUGS (1)
  1. ENALAPRIL MALEATE [Suspect]
     Indication: CARDIAC DISORDER
     Dosage: 5MG TWICE DAILY PO
     Route: 048
     Dates: start: 20101211, end: 20101213

REACTIONS (1)
  - ADVERSE REACTION [None]
